FAERS Safety Report 7807939 (Version 2)
Quarter: 2014Q2

REPORT INFORMATION
  Report Type: Report from Study
  Country: US (occurrence: US)
  Receive Date: 20110210
  Receipt Date: 20140626
  Transmission Date: 20141212
  Serious: Yes (Other)
  Sender: FDA-Public Use
  Company Number: US-ROCHE-756316

PATIENT
  Sex: 0

DRUGS (3)
  1. CAPECITABINE [Suspect]
     Indication: RECTAL CANCER
     Dosage: DAYS 1-14 AND 22-35
     Route: 065
  2. CAPECITABINE [Suspect]
     Dosage: MODIFIED DOSE
     Route: 065
  3. OXALIPLATIN [Suspect]
     Indication: RECTAL CANCER
     Dosage: WEEKS 1, 2, 4 AND 5
     Route: 065

REACTIONS (5)
  - Pain [Unknown]
  - Gastrointestinal disorder [Unknown]
  - Blood disorder [Unknown]
  - Metabolic disorder [Unknown]
  - Skin disorder [Unknown]
